FAERS Safety Report 6724711-8 (Version None)
Quarter: 2010Q2

REPORT INFORMATION
  Report Type: 
  Country: None (occurrence: None)
  Receive Date: 20100513
  Receipt Date: 20100511
  Transmission Date: 20101027
  Serious: Yes (Hospitalization)
  Sender: FDA-Public Use
  Company Number: FR-MERCK-1005FRA00050

PATIENT
  Age: 80 Year
  Sex: Male

DRUGS (11)
  1. SINGULAIR [Suspect]
     Route: 048
     Dates: end: 20100218
  2. SINGULAIR [Suspect]
     Route: 048
     Dates: start: 20100301
  3. MYSOLINE [Suspect]
     Indication: ESSENTIAL TREMOR
     Route: 048
     Dates: end: 20100218
  4. SYMBICORT [Suspect]
     Route: 055
     Dates: end: 20100218
  5. SYMBICORT [Suspect]
     Route: 055
     Dates: start: 20100301
  6. PIPRAM [Concomitant]
     Route: 048
     Dates: start: 20100211, end: 20100218
  7. LOXEN [Concomitant]
     Route: 065
     Dates: start: 20100218, end: 20100222
  8. EUPRESSYL [Concomitant]
     Route: 065
     Dates: start: 20100219, end: 20100301
  9. NEXIUM [Concomitant]
     Route: 065
     Dates: start: 20100219
  10. CORDARONE [Concomitant]
     Route: 065
     Dates: start: 20100219
  11. CALCIPARINE [Concomitant]
     Route: 065
     Dates: start: 20100219, end: 20100220

REACTIONS (2)
  - AGITATION [None]
  - PERSECUTORY DELUSION [None]
